FAERS Safety Report 5899415-4 (Version None)
Quarter: 2008Q3

REPORT INFORMATION
  Report Type: 
  Country: None (occurrence: None)
  Receive Date: 20080924
  Receipt Date: 20080911
  Transmission Date: 20090109
  Serious: Yes (Death, Hospitalization, Other)
  Sender: FDA-Public Use
  Company Number: 2007BI011497

PATIENT
  Age: 53 Year
  Sex: Female

DRUGS (3)
  1. AVONEX [Suspect]
     Indication: MULTIPLE SCLEROSIS
     Dosage: 30 UG; QW; IM, 30 UG; QW; IM
     Route: 030
     Dates: start: 20030101
  2. AVONEX [Suspect]
  3. AVONEX [Suspect]

REACTIONS (9)
  - BREAST CANCER FEMALE [None]
  - CONSCIOUSNESS FLUCTUATING [None]
  - LYMPHOMA [None]
  - METASTASES TO GASTROINTESTINAL TRACT [None]
  - METASTASES TO LIVER [None]
  - METASTASES TO LUNG [None]
  - NEPHROLITHIASIS [None]
  - NON-SMALL CELL LUNG CANCER METASTATIC [None]
  - SUPERIOR VENA CAVAL OCCLUSION [None]
